FAERS Safety Report 24661267 (Version 1)
Quarter: 2024Q4

REPORT INFORMATION
  Report Type: Spontaneous
  Country: US (occurrence: US)
  Receive Date: 20241125
  Receipt Date: 20241125
  Transmission Date: 20250115
  Serious: No
  Sender: AVADEL CNS PHARMACEUTICALS, LLC
  Company Number: US-AVADEL CNS PHARMACEUTICALS, LLC-2024AVA01618

PATIENT
  Age: 32 Year
  Sex: Female

DRUGS (10)
  1. LUMRYZ [Suspect]
     Active Substance: SODIUM OXYBATE
     Dosage: 7.5 G
     Dates: start: 20240809
  2. XYREM [Suspect]
     Active Substance: SODIUM OXYBATE
     Indication: Narcolepsy
     Dosage: UNK
  3. CETIRIZINE HCL [Concomitant]
     Active Substance: CETIRIZINE HYDROCHLORIDE
     Dosage: UNK
     Dates: start: 20190101
  4. INOSITOL [Concomitant]
     Active Substance: INOSITOL
     Dates: start: 20190618
  5. MAGNESIUM GLUCONATE [Concomitant]
     Active Substance: MAGNESIUM GLUCONATE
     Dosage: UNK
     Dates: start: 20200101
  6. PEPCID AC [Concomitant]
     Active Substance: FAMOTIDINE
     Dosage: UNK
     Dates: start: 20200101
  7. IRON [Concomitant]
     Active Substance: IRON
     Dosage: UNK
     Dates: start: 20210612
  8. FISH OIL [Concomitant]
     Active Substance: FISH OIL
     Dosage: UNK
     Dates: start: 20200101
  9. TURMERIC COMPLEX [Concomitant]
     Dosage: UNK
     Dates: start: 20200101
  10. VYVANSE [Concomitant]
     Active Substance: LISDEXAMFETAMINE DIMESYLATE
     Dosage: UNK
     Dates: start: 20230719

REACTIONS (5)
  - Sleep deficit [Unknown]
  - Epistaxis [Unknown]
  - Sedation [Unknown]
  - Enuresis [Unknown]
  - Nocturia [Unknown]

NARRATIVE: CASE EVENT DATE: 20240801
